FAERS Safety Report 16624059 (Version 1)
Quarter: 2019Q3

REPORT INFORMATION
  Report Type: Spontaneous
  Country: DE (occurrence: DE)
  Receive Date: 20190724
  Receipt Date: 20190724
  Transmission Date: 20191004
  Serious: Yes (Death, Hospitalization)
  Sender: FDA-Public Use
  Company Number: DE-TEVA-2019-DE-1079976

PATIENT
  Age: 97 Year
  Sex: Female
  Weight: 50 kg

DRUGS (8)
  1. HYDROCHLOROTHIAZID [Concomitant]
     Active Substance: HYDROCHLOROTHIAZIDE
     Dosage: 25 MG, 1-0-0-0, TABLETS
     Route: 048
  2. L-THYROX HEXAL 75 MICROGRAM [Concomitant]
     Dosage: 75 MICROGRAM , 1-0-0-0, TABLETS
     Route: 048
  3. QUINAPRIL. [Concomitant]
     Active Substance: QUINAPRIL
     Dosage: 20 MG, 1-0-0-0, TABLETS
     Route: 048
  4. CALCIGEN D 600MG/400I.E. [Concomitant]
     Dosage: 600|400 MG/IE, 1-0-0-0, TABLETS
     Route: 048
  5. CARVEDILOL. [Suspect]
     Active Substance: CARVEDILOL
     Dosage: 12.5 MG, 1-0-1-0, TABLETS
     Route: 048
  6. DIGIMERCK [Suspect]
     Active Substance: DIGITOXIN
     Dosage: 0.05 MG, 1-0-0-0, TABLETS?DIGIMERCK PICO 0,05MG
     Route: 048
  7. TORASEMID 1A [Concomitant]
     Dosage: 10 MG, 0.5-0-0-0, TABLETS
     Route: 048
  8. CLOPIDOGREL [Concomitant]
     Active Substance: CLOPIDOGREL BISULFATE
     Dosage: 75 MG, 1-0-0-0, TABLETS
     Route: 048

REACTIONS (8)
  - Arrhythmia [Unknown]
  - Hypertension [Unknown]
  - Loss of consciousness [Unknown]
  - Syncope [Unknown]
  - Fall [Unknown]
  - Bradycardia [Unknown]
  - Dehydration [Unknown]
  - Haematoma [Unknown]
